FAERS Safety Report 23265053 (Version 6)
Quarter: 2024Q1

REPORT INFORMATION
  Report Type: Report from Study
  Country: US (occurrence: US)
  Receive Date: 20231206
  Receipt Date: 20240227
  Transmission Date: 20240410
  Serious: Yes (Other)
  Sender: FDA-Public Use
  Company Number: US-UCBSA-2023057269

PATIENT
  Age: 7 Year
  Sex: Male
  Weight: 21 kg

DRUGS (3)
  1. FINTEPLA [Suspect]
     Active Substance: FENFLURAMINE
     Indication: Severe myoclonic epilepsy of infancy
     Dosage: 6.6 MILLIGRAM PER DAY
     Dates: start: 20210209, end: 20230411
  2. FINTEPLA [Suspect]
     Active Substance: FENFLURAMINE
     Dosage: 2.5 MILLILITER, 2X/DAY (BID) (11 MILLIGRAM)
     Dates: start: 2023
  3. CLOBAZAM [Concomitant]
     Active Substance: CLOBAZAM
     Indication: Seizure
     Dosage: 15 MILLIGRAM, 2X/DAY (BID)
     Route: 048
     Dates: start: 2020

REACTIONS (3)
  - Tricuspid valve incompetence [Unknown]
  - Mitral valve thickening [Not Recovered/Not Resolved]
  - Mitral valve incompetence [Unknown]

NARRATIVE: CASE EVENT DATE: 20220908
